FAERS Safety Report 7960751 (Version 8)
Quarter: 2013Q1

REPORT INFORMATION
  Report Type: Report from Study
  Country: US (occurrence: US)
  Receive Date: 20110525
  Receipt Date: 20130227
  Transmission Date: 20140127
  Serious: Yes (Death)
  Sender: FDA-Public Use
  Company Number: US-UCBSA-030670

PATIENT
  Age: 31 Year
  Sex: Male
  Weight: 98 kg

DRUGS (11)
  1. LACOSAMIDE [Suspect]
     Indication: EPILEPSY
     Route: 048
     Dates: start: 20101108
  2. OMEPRAZOLE [Concomitant]
     Indication: DYSPEPSIA
     Dates: start: 20110311
  3. ADDERALL [Concomitant]
     Indication: ATTENTION DEFICIT/HYPERACTIVITY DISORDER
     Dates: start: 201001
  4. TYLENOL [Concomitant]
     Indication: BACK PAIN
     Dates: start: 1999
  5. CALCIUM CARBONATE (TUMS) [Concomitant]
     Indication: DYSPEPSIA
     Dates: start: 20101130
  6. DEPAKOTE [Concomitant]
     Indication: EPILEPSY
     Dosage: 500 MG AT BED TIME
     Dates: start: 20101216, end: 20110112
  7. DEPAKOTE [Concomitant]
     Indication: EPILEPSY
     Dates: start: 20101208, end: 20101215
  8. DEPAKOTE [Concomitant]
     Indication: EPILEPSY
     Dosage: 500 MG EVERY MORNING AND 1000 MG ONCE EVERY NIGHT
     Dates: start: 20101201, end: 20101207
  9. DEPAKOTE [Concomitant]
     Indication: EPILEPSY
     Dates: start: 20100804, end: 20101130
  10. ADVIL [Concomitant]
  11. PENNSAID [Concomitant]
     Indication: MYALGIA
     Dosage: 16.05 MG/ML
     Dates: start: 20110131

REACTIONS (1)
  - Sudden unexplained death in epilepsy [Fatal]
